FAERS Safety Report 9276854 (Version 1)
Quarter: 2013Q2

REPORT INFORMATION
  Report Type: Spontaneous
  Country: US (occurrence: None)
  Receive Date: 20130501
  Receipt Date: 20130501
  Transmission Date: 20140414
  Serious: Yes (Hospitalization)
  Sender: FDA-Public Use
  Company Number: 2013-0672

PATIENT
  Age: 67 Year
  Sex: Male

DRUGS (1)
  1. KYPROLIS(CARFILZOMIB) (INJECTION FOR INFUSION) (CARFILZOMIB) [Suspect]
     Indication: PLASMA CELL MYELOMA
     Dosage: (27 MG/M2, 2 IN 1 WK)
     Dates: start: 20130328

REACTIONS (6)
  - Dehydration [None]
  - Hypertension [None]
  - Ventricular fibrillation [None]
  - Muscular weakness [None]
  - Balance disorder [None]
  - Confusional state [None]
